FAERS Safety Report 4974977-X (Version None)
Quarter: 2006Q2

REPORT INFORMATION
  Report Type: 
  Country: None (occurrence: None)
  Receive Date: 20060414
  Receipt Date: 20060414
  Transmission Date: 20061013
  Serious: Yes (Death)
  Sender: FDA-Public Use
  Company Number: None

PATIENT
  Age: 58 Year
  Sex: Female

DRUGS (8)
  1. TAXOTERE [Suspect]
     Indication: PANCREATIC CARCINOMA METASTATIC
     Dosage: 22 MG WEEKLY IV DRIP
     Route: 041
     Dates: start: 20060301, end: 20060329
  2. GEMCITABINE [Suspect]
     Indication: PANCREATIC CARCINOMA METASTATIC
     Dosage: 550 MG WEEKLY IV DRIP
     Route: 041
     Dates: start: 20060301, end: 20060329
  3. XELODA [Suspect]
     Indication: PANCREATIC CARCINOMA METASTATIC
     Dosage: BID PO
     Route: 048
     Dates: start: 20060226, end: 20060401
  4. LOVONOX [Concomitant]
  5. REMERON [Concomitant]
  6. REGLAN [Concomitant]
  7. CREON [Concomitant]
  8. CENTRUM [Concomitant]

REACTIONS (13)
  - ASCITES [None]
  - CACHEXIA [None]
  - DEHYDRATION [None]
  - DIARRHOEA [None]
  - DYSPNOEA [None]
  - HAEMATEMESIS [None]
  - ILL-DEFINED DISORDER [None]
  - NEUTROPENIC SEPSIS [None]
  - OEDEMA [None]
  - PANCYTOPENIA [None]
  - PYREXIA [None]
  - TACHYCARDIA [None]
  - VOMITING [None]
